FAERS Safety Report 21329065 (Version 1)
Quarter: 2022Q3

REPORT INFORMATION
  Report Type: Report from Study
  Country: CA (occurrence: CA)
  Receive Date: 20220913
  Receipt Date: 20220913
  Transmission Date: 20221027
  Serious: Yes (Disabling, Other)
  Sender: FDA-Public Use
  Company Number: CA-BRISTOL-MYERS SQUIBB COMPANY-2022-098645

PATIENT
  Age: 84 Year
  Sex: Male
  Weight: 72 kg

DRUGS (3)
  1. REBLOZYL [Suspect]
     Active Substance: LUSPATERCEPT-AAMT
     Indication: Myelodysplastic syndrome
     Route: 065
     Dates: start: 20220301
  2. REBLOZYL [Suspect]
     Active Substance: LUSPATERCEPT-AAMT
     Dosage: Q3 WEEKS
     Route: 058
     Dates: start: 20210928
  3. REBLOZYL [Suspect]
     Active Substance: LUSPATERCEPT-AAMT
     Route: 058
     Dates: start: 20210812

REACTIONS (6)
  - Heart rate decreased [Unknown]
  - Respiratory rate increased [Unknown]
  - Weight decreased [Unknown]
  - Mobility decreased [Unknown]
  - Hypotension [Unknown]
  - Prescribed overdose [Unknown]

NARRATIVE: CASE EVENT DATE: 20220801
